FAERS Safety Report 17824857 (Version 5)
Quarter: 2022Q2

REPORT INFORMATION
  Report Type: Report from Study
  Country: US (occurrence: US)
  Receive Date: 20200526
  Receipt Date: 20220606
  Transmission Date: 20220721
  Serious: Yes (Other)
  Sender: FDA-Public Use
  Company Number: US-SHIRE-US202016968

PATIENT
  Age: 20 Year
  Sex: Male

DRUGS (1)
  1. RECOMBINATE [Suspect]
     Active Substance: ANTIHEMOPHILIC FACTOR, HUMAN RECOMBINANT
     Indication: Product used for unknown indication
     Dosage: 2500 INTERNATIONAL UNIT
     Route: 042

REACTIONS (6)
  - Haemorrhage [Recovered/Resolved]
  - Haemarthrosis [Recovered/Resolved]
  - Accident [Unknown]
  - Extra dose administered [Unknown]
  - Limb discomfort [Unknown]
  - Product availability issue [Unknown]

NARRATIVE: CASE EVENT DATE: 20200516
